FAERS Safety Report 8435338-4 (Version None)
Quarter: 2012Q2

REPORT INFORMATION
  Report Type: 
  Country: None (occurrence: None)
  Receive Date: 20120614
  Receipt Date: 20120612
  Transmission Date: 20120825
  Serious: Yes (Other)
  Sender: FDA-Public Use
  Company Number: US-BAYER-2012-046973

PATIENT
  Age: 55 Year
  Sex: Female
  Weight: 45.351 kg

DRUGS (1)
  1. BETASERON [Suspect]
     Indication: MULTIPLE SCLEROSIS
     Dosage: 8 MIU, QOD
     Route: 058
     Dates: start: 20070828

REACTIONS (3)
  - DEPRESSION [None]
  - HYPOPHAGIA [None]
  - WEIGHT DECREASED [None]
